FAERS Safety Report 7387295-X (Version None)
Quarter: 2011Q1

REPORT INFORMATION
  Report Type: 
  Country: None (occurrence: None)
  Receive Date: 20110331
  Receipt Date: 20110306
  Transmission Date: 20110831
  Serious: No
  Sender: FDA-Public Use
  Company Number: US-B.I. PHARMACEUTICALS,INC./RIDGEFIELD-2011-BP-06981BP

PATIENT
  Sex: Female

DRUGS (8)
  1. DILTIAZEM [Suspect]
     Indication: HYPERTENSION
     Dosage: 180 MG
     Dates: start: 20110228, end: 20110314
  2. GLUCOPHAGE XR [Concomitant]
     Indication: DIABETES MELLITUS
     Dosage: 500 MG
  3. NEXIUM [Concomitant]
     Indication: OESOPHAGEAL DISORDER
     Route: 048
  4. DIGOXIN [Concomitant]
     Indication: ATRIAL FIBRILLATION
     Dates: start: 20110315
  5. CELEBREX [Concomitant]
     Indication: ARTHRALGIA
     Route: 048
  6. DIOVAN [Concomitant]
     Indication: HYPERTENSION
     Dates: start: 20110315
  7. CELEBREX [Concomitant]
     Indication: PAIN
     Dosage: 200 MG
  8. PRADAXA [Suspect]
     Indication: ATRIAL FIBRILLATION
     Dosage: 300 MG
     Route: 048
     Dates: start: 20110228

REACTIONS (3)
  - JOINT SWELLING [None]
  - RASH [None]
  - POLLAKIURIA [None]
